FAERS Safety Report 9449761 (Version 2)
Quarter: 2013Q4

REPORT INFORMATION
  Report Type: Spontaneous
  Country: US (occurrence: US)
  Receive Date: 20130809
  Receipt Date: 20131227
  Transmission Date: 20140711
  Serious: Yes (Hospitalization, Other)
  Sender: FDA-Public Use
  Company Number: US-BAYER-2013-096378

PATIENT
  Age: 34 Year
  Sex: Female
  Weight: 117.91 kg

DRUGS (13)
  1. OCELLA [Suspect]
     Dosage: UNK
     Route: 048
     Dates: start: 20090317, end: 20111128
  2. YASMIN [Suspect]
     Dosage: UNK
     Route: 048
     Dates: start: 20030223, end: 200412
  3. NEXIUM [Concomitant]
     Dosage: 40 MG, EVERY 4 HOURS
     Route: 042
     Dates: start: 20111121
  4. DILAUDID [Concomitant]
     Dosage: 0.5 MG, UNK
     Route: 042
     Dates: start: 20111121
  5. FENTANYL [Concomitant]
     Dosage: 500 MCG, UNK
     Route: 042
     Dates: start: 20111121
  6. ANCEF [Concomitant]
     Dosage: 1 GM, UNK
     Route: 042
     Dates: start: 20111121
  7. HEPARIN [Concomitant]
     Dosage: 5000 UNITS
     Route: 042
     Dates: start: 20111121
  8. MORPHINE SULFATE [Concomitant]
     Dosage: 6 MG, UNK
     Route: 042
     Dates: start: 20111121
  9. OXYCODONE/APAP [Concomitant]
     Dosage: 5 MG, UNK
     Route: 048
     Dates: start: 20111121, end: 20111122
  10. HYDROCODONE W/ACETAMINOPHEN [Concomitant]
     Dosage: 7.5-750
  11. HYDROMORPHONE HCL [Concomitant]
     Dosage: 0.5 MG, UNK
     Route: 042
     Dates: start: 20111125
  12. PANTOPRAZOLE SODIUM [Concomitant]
     Dosage: 40 MG, UNK
     Route: 042
     Dates: start: 20111125
  13. ONDANSETRON [Concomitant]
     Dosage: 4 MG, UNK
     Route: 042
     Dates: start: 20111125

REACTIONS (4)
  - Hepatic vein thrombosis [None]
  - Injury [None]
  - Emotional distress [None]
  - Cholecystitis [None]
